FAERS Safety Report 14657523 (Version 2)
Quarter: 2018Q2

REPORT INFORMATION
  Report Type: Spontaneous
  Country: US (occurrence: US)
  Receive Date: 20180320
  Receipt Date: 20180504
  Transmission Date: 20180711
  Serious: No
  Sender: FDA-Public Use
  Company Number: US-ASTRAZENECA-2018SE30948

PATIENT
  Age: 20 Year
  Sex: Male

DRUGS (4)
  1. ADDERALL XR [Concomitant]
     Active Substance: AMPHETAMINE ASPARTATE\AMPHETAMINE SULFATE\DEXTROAMPHETAMINE SACCHARATE\DEXTROAMPHETAMINE SULFATE
     Route: 048
     Dates: start: 20150311
  2. VENTOLIN RESCUE INHALER [Concomitant]
     Dosage: AS REQUIRED
     Route: 048
  3. PULMICORT FLEXHALER [Suspect]
     Active Substance: BUDESONIDE
     Dosage: 180 MCG 2 PUFFS TWICE DAILY
     Route: 055
  4. WELLBUTRIN XL [Concomitant]
     Active Substance: BUPROPION HYDROCHLORIDE
     Route: 048
     Dates: start: 20160525

REACTIONS (4)
  - Product quality issue [Unknown]
  - Intentional product misuse [Unknown]
  - Attention deficit/hyperactivity disorder [Unknown]
  - Asthma [Unknown]

NARRATIVE: CASE EVENT DATE: 2018
